FAERS Safety Report 9920978 (Version 1)
Quarter: 2014Q1

REPORT INFORMATION
  Report Type: Spontaneous
  Country: US (occurrence: US)
  Receive Date: 20140225
  Receipt Date: 20140225
  Transmission Date: 20141002
  Serious: No
  Sender: FDA-Public Use
  Company Number: US-BIOGENIDEC-2014BI017715

PATIENT
  Age: 54 Year
  Sex: Female

DRUGS (11)
  1. TYSABRI [Suspect]
     Indication: PRODUCT USED FOR UNKNOWN INDICATION
     Route: 042
     Dates: start: 20070214
  2. ESTRADIOL [Concomitant]
     Route: 067
  3. CHOLECALCIFEROL [Concomitant]
  4. TYLENOL [Concomitant]
     Route: 048
  5. BENEDRYL [Concomitant]
     Route: 048
  6. OMEGA-3 FATTY ACIDS [Concomitant]
     Route: 048
  7. MAGNESIUM CITRATE [Concomitant]
     Route: 048
  8. LORAZEPAM [Concomitant]
     Indication: ANXIETY
     Route: 048
  9. LORAZEPAM [Concomitant]
     Indication: SLEEP DISORDER
     Route: 048
  10. ADVIL [Concomitant]
     Indication: PRODUCT USED FOR UNKNOWN INDICATION
     Route: 048
  11. EFUDEX [Concomitant]
     Route: 061

REACTIONS (3)
  - Herpes zoster [Unknown]
  - Bronchitis [Unknown]
  - Off label use [Unknown]
